FAERS Safety Report 17727717 (Version 1)
Quarter: 2020Q2

REPORT INFORMATION
  Report Type: Spontaneous
  Country: IR (occurrence: IR)
  Receive Date: 20200430
  Receipt Date: 20200430
  Transmission Date: 20200714
  Serious: Yes (Life-Threatening, Hospitalization, Other)
  Sender: FDA-Public Use
  Company Number: IR-HQ SPECIALTY-IR-2020INT000052

PATIENT
  Age: 23 Year
  Sex: Female

DRUGS (1)
  1. MAGNESIUM SULFATE IN WATER FOR INJECTION [Suspect]
     Active Substance: MAGNESIUM SULFATE HEPTAHYDRATE
     Indication: PREMATURE LABOUR
     Dosage: UNK
     Route: 065

REACTIONS (1)
  - Acute pulmonary oedema [Recovered/Resolved]
